FAERS Safety Report 10265925 (Version 1)
Quarter: 2014Q2

REPORT INFORMATION
  Report Type: Spontaneous
  Country: US (occurrence: US)
  Receive Date: 20140627
  Receipt Date: 20140627
  Transmission Date: 20141212
  Serious: Yes (Other)
  Sender: FDA-Public Use
  Company Number: US-PFIZER INC-2014173388

PATIENT
  Age: 52 Year
  Sex: Female
  Weight: 61.22 kg

DRUGS (3)
  1. LYRICA [Suspect]
     Indication: NEURALGIA
     Dosage: 75 MG, 2X/DAY
     Route: 048
     Dates: start: 2000
  2. METHOCARBAMOL [Concomitant]
     Indication: MUSCLE RELAXANT THERAPY
     Dosage: UNK (UP TO 1500MG), 2X/DAY
  3. DIAZEPAM [Concomitant]
     Dosage: 10 MG, DAILY

REACTIONS (4)
  - Nerve injury [Unknown]
  - Abasia [Recovered/Resolved]
  - Musculoskeletal disorder [Unknown]
  - Spinal disorder [Unknown]
